FAERS Safety Report 5350022-1 (Version None)
Quarter: 2007Q2

REPORT INFORMATION
  Report Type: 
  Country: None (occurrence: None)
  Receive Date: 20070510
  Receipt Date: 20070109
  Transmission Date: 20071010
  Serious: Yes (Hospitalization)
  Sender: FDA-Public Use
  Company Number: 2007S1000034

PATIENT
  Age: 32 Year
  Sex: Male
  Weight: 102.3 kg

DRUGS (4)
  1. CUBICIN [Suspect]
     Indication: STAPHYLOCOCCAL BACTERAEMIA
     Dosage: 600 MG; Q24H; IV
     Route: 042
     Dates: start: 20061221, end: 20070102
  2. OXACILLIN [Concomitant]
  3. WARFARIN SODIUM [Concomitant]
  4. LANSOPRAZOLE [Concomitant]

REACTIONS (3)
  - BLOOD CREATINE PHOSPHOKINASE INCREASED [None]
  - MUSCULAR WEAKNESS [None]
  - MYALGIA [None]
